FAERS Safety Report 24415301 (Version 1)
Quarter: 2024Q4

REPORT INFORMATION
  Report Type: Spontaneous
  Country: US (occurrence: US)
  Receive Date: 20241009
  Receipt Date: 20241009
  Transmission Date: 20250115
  Serious: Yes (Hospitalization)
  Sender: SANDOZ
  Company Number: US-SANDOZ-SDZ2024US084393

PATIENT
  Age: 54 Year
  Sex: Female
  Weight: 70 kg

DRUGS (14)
  1. LEUCOVORIN CALCIUM [Suspect]
     Active Substance: LEUCOVORIN CALCIUM
     Indication: HER2 positive colorectal cancer
     Dosage: EVERY 2 WEEKS ON DAYS 1, 15 AND 29 OF EACH 6-WEEK CYCLE
     Route: 042
     Dates: start: 20240628, end: 20240906
  2. LEUCOVORIN CALCIUM [Suspect]
     Active Substance: LEUCOVORIN CALCIUM
     Indication: Colorectal cancer metastatic
  3. FLUOROURACIL [Suspect]
     Active Substance: FLUOROURACIL
     Indication: Colorectal cancer metastatic
     Dosage: OVER 46-48 HOURS) EVERY 2 WEEKS ON DAYS  1, 15 AND 29 OF EACH 6-WEEK  CYCLE
     Route: 042
     Dates: end: 20240906
  4. FLUOROURACIL [Suspect]
     Active Substance: FLUOROURACIL
     Indication: HER2 positive colorectal cancer
     Dosage: 400 MG/M2, IV BOLUS, INTRAVENOUS
     Route: 040
     Dates: start: 20240628
  5. HETROMBOPAG OLAMINE [Suspect]
     Active Substance: HETROMBOPAG OLAMINE
     Indication: Platelet count decreased
     Dosage: 2.5 MG
     Route: 065
     Dates: start: 20240902, end: 20240919
  6. LOPERAMIDE [Suspect]
     Active Substance: LOPERAMIDE
     Indication: Colorectal cancer metastatic
     Dosage: 4 MG, 2X/DAY (DAY 15 THROUGH DAY 42)
     Route: 065
     Dates: end: 20240619
  7. LOPERAMIDE [Suspect]
     Active Substance: LOPERAMIDE
     Indication: HER2 positive colorectal cancer
     Dosage: 4 MG, 3X/DAY (DAYS 1 TO 14)
     Route: 065
     Dates: start: 20240628
  8. OXALIPLATIN [Suspect]
     Active Substance: OXALIPLATIN
     Indication: HER2 positive colorectal cancer
     Dosage: EVERY 2 WEEKS ON DAYS 1,15 AND 29 OF EACH 6-WEEK (42-DAY) CYCLE
     Route: 042
     Dates: start: 20240628, end: 20240906
  9. OXALIPLATIN [Suspect]
     Active Substance: OXALIPLATIN
     Indication: Colorectal cancer metastatic
  10. TRASTUZUMAB [Suspect]
     Active Substance: TRASTUZUMAB
     Indication: Colorectal cancer metastatic
     Dosage: ON CYCLE 1 DAY 22 THEN DAY 1 AND DAY 22 OF  EACH SUBSEQUENT 6-WEEK  (42-DAY) CYCLE,
     Route: 042
     Dates: end: 20240830
  11. TRASTUZUMAB [Suspect]
     Active Substance: TRASTUZUMAB
     Indication: HER2 positive colorectal cancer
     Dosage: ON DAY 1 OF EVERY 3 WEEKS (Q3W) (SINGLE LOADING DOSE 8MG/KG IV ON C1D1),
     Route: 042
     Dates: start: 20240628
  12. TUCATINIB [Suspect]
     Active Substance: TUCATINIB
     Indication: HER2 positive colorectal cancer
     Dosage: 300 MG, BID
     Route: 048
     Dates: start: 20240628, end: 20240919
  13. TUCATINIB [Suspect]
     Active Substance: TUCATINIB
     Indication: Colorectal cancer metastatic
  14. POTASSIUM CHLORIDE [Concomitant]
     Active Substance: POTASSIUM CHLORIDE
     Indication: Hypokalaemia
     Dosage: TABLET
     Route: 065
     Dates: start: 20240919

REACTIONS (1)
  - Pulmonary embolism [Not Recovered/Not Resolved]

NARRATIVE: CASE EVENT DATE: 20240919
